FAERS Safety Report 4922700-7 (Version None)
Quarter: 2006Q1

REPORT INFORMATION
  Report Type: 
  Country: None (occurrence: None)
  Receive Date: 20060221
  Receipt Date: 20060202
  Transmission Date: 20060701
  Serious: Yes (Other)
  Sender: FDA-Public Use
  Company Number: 2006ST000022

PATIENT
  Age: 81 Year
  Sex: Female

DRUGS (4)
  1. ZEGERID [Suspect]
     Indication: REFLUX OESOPHAGITIS
     Dosage: 40 MG; QD; PO
     Route: 048
  2. MELOXICAM [Concomitant]
  3. PROCHLORPERAZINE MALEATE [Concomitant]
  4. DOCUSATE SODIUM [Concomitant]

REACTIONS (12)
  - ANOREXIA [None]
  - BLOOD CREATINE PHOSPHOKINASE INCREASED [None]
  - C-REACTIVE PROTEIN INCREASED [None]
  - DERMATOMYOSITIS [None]
  - LETHARGY [None]
  - PYREXIA [None]
  - RASH ERYTHEMATOUS [None]
  - RASH PAPULAR [None]
  - RASH PRURITIC [None]
  - RED BLOOD CELL SEDIMENTATION RATE INCREASED [None]
  - SKIN NECROSIS [None]
  - VASCULITIS [None]
